FAERS Safety Report 7188132-9 (Version None)
Quarter: 2010Q4

REPORT INFORMATION
  Report Type: 
  Country: None (occurrence: None)
  Receive Date: 20101222
  Receipt Date: 20101213
  Transmission Date: 20110411
  Serious: Yes (Other)
  Sender: FDA-Public Use
  Company Number: GB-MYLANLABS-2010S1022912

PATIENT
  Sex: Female

DRUGS (6)
  1. ATENOLOL [Suspect]
     Indication: CARDIAC DISORDER
     Route: 048
  2. FUROSEMIDE [Suspect]
     Indication: CARDIAC DISORDER
     Route: 048
  3. CLOPIDOGREL [Concomitant]
     Indication: PRODUCT USED FOR UNKNOWN INDICATION
  4. GEMFIBROZIL [Concomitant]
     Indication: CARDIAC DISORDER
  5. LOSARTAN [Concomitant]
     Indication: PRODUCT USED FOR UNKNOWN INDICATION
  6. MULTI-VITAMIN [Concomitant]
     Indication: ALOPECIA

REACTIONS (1)
  - ALOPECIA [None]
